FAERS Safety Report 5145040-2 (Version None)
Quarter: 2006Q4

REPORT INFORMATION
  Report Type: 
  Country: None (occurrence: None)
  Receive Date: 20061107
  Receipt Date: 20061012
  Transmission Date: 20070319
  Serious: Yes (Life-Threatening, Other)
  Sender: FDA-Public Use
  Company Number: JP-JPN-A200604149

PATIENT
  Age: 88 Year
  Sex: Female
  Weight: 40 kg

DRUGS (6)
  1. PAXIL [Suspect]
     Indication: DEPRESSION
     Dosage: 40MG PER DAY
     Route: 048
     Dates: start: 20060801
  2. MAINTATE [Suspect]
     Indication: HYPERTENSION
     Dosage: 5MG PER DAY
     Route: 048
     Dates: start: 20060801, end: 20061011
  3. BLOPRESS [Concomitant]
     Indication: HYPERTENSION
     Dosage: 8MG PER DAY
     Route: 048
  4. DEPAS [Concomitant]
     Indication: ANXIETY
     Dosage: .5MG PER DAY
     Route: 048
  5. FERROMIA [Concomitant]
     Dosage: .6G PER DAY
     Route: 048
  6. UNKNOWN DRUG [Concomitant]
     Indication: GASTRITIS
     Dosage: 2G PER DAY
     Route: 048

REACTIONS (4)
  - ATRIAL TACHYCARDIA [None]
  - CARDIAC FAILURE ACUTE [None]
  - DYSPNOEA [None]
  - PULMONARY CONGESTION [None]
